FAERS Safety Report 5269083-3 (Version None)
Quarter: 2007Q1

REPORT INFORMATION
  Report Type: 
  Country: None (occurrence: None)
  Receive Date: 20070319
  Receipt Date: 20070307
  Transmission Date: 20070707
  Serious: No
  Sender: FDA-Public Use
  Company Number: US-ELI_LILLY_AND_COMPANY-US200702000798

PATIENT
  Age: 27 Year
  Sex: Female

DRUGS (4)
  1. CYMBALTA [Suspect]
     Indication: MAJOR DEPRESSION
     Dosage: 60 MG, UNK
  2. SEROQUEL [Concomitant]
  3. ABILIFY [Concomitant]
     Dosage: 15 MG, DAILY (1/D)
     Dates: start: 20060101
  4. TOPAMAX [Concomitant]
     Dosage: 300 MG, DAILY (1/D)
     Dates: start: 20050601

REACTIONS (4)
  - ALANINE AMINOTRANSFERASE INCREASED [None]
  - ASPARTATE AMINOTRANSFERASE INCREASED [None]
  - BLOOD ALKALINE PHOSPHATASE INCREASED [None]
  - PAIN [None]
